FAERS Safety Report 14379532 (Version 1)
Quarter: 2018Q1

REPORT INFORMATION
  Report Type: Spontaneous
  Country: US (occurrence: US)
  Receive Date: 20180112
  Receipt Date: 20180112
  Transmission Date: 20180509
  Serious: Yes (Other)
  Sender: FDA-Public Use
  Company Number: US-MACLEODS PHARMACEUTICALS US LTD-MAC2017008431

PATIENT

DRUGS (3)
  1. SALBUTAMOL [Concomitant]
     Active Substance: ALBUTEROL
     Indication: ASTHMA
     Dosage: UNK
     Route: 065
  2. MONTELUKAST [Suspect]
     Active Substance: MONTELUKAST SODIUM
     Indication: ASTHMA
     Dosage: 10 MG, QD
     Route: 065
  3. ADVAIR HFA [Concomitant]
     Active Substance: FLUTICASONE PROPIONATE\SALMETEROL XINAFOATE
     Indication: ASTHMA
     Dosage: UNK, POWDER FOR INHALATION
     Route: 055

REACTIONS (12)
  - Flushing [Recovering/Resolving]
  - Restlessness [Recovering/Resolving]
  - Panic disorder [Recovered/Resolved]
  - Morbid thoughts [Recovering/Resolving]
  - Anxiety [Recovering/Resolving]
  - Heart rate increased [Recovering/Resolving]
  - Nasal congestion [Recovered/Resolved]
  - Sensory loss [Recovering/Resolving]
  - Insomnia [Recovering/Resolving]
  - Intrusive thoughts [Recovered/Resolved]
  - Merycism [Recovered/Resolved]
  - Palpitations [Recovering/Resolving]
